FAERS Safety Report 8260058-9 (Version None)
Quarter: 2012Q2

REPORT INFORMATION
  Report Type: 
  Country: None (occurrence: None)
  Receive Date: 20120404
  Receipt Date: 20120330
  Transmission Date: 20120825
  Serious: Yes (Hospitalization)
  Sender: FDA-Public Use
  Company Number: US-TEVA-330956USA

PATIENT
  Sex: Female
  Weight: 83.99 kg

DRUGS (14)
  1. PROVIGIL [Suspect]
     Indication: FATIGUE
  2. PAROXETINE HCL [Concomitant]
     Indication: DEPRESSION
     Dosage: 40 MILLIGRAM;
  3. TRAMADOL HCL [Concomitant]
     Indication: PAIN
     Dosage: 50 MILLIGRAM;
     Route: 048
  4. PROVIGIL [Suspect]
     Indication: SLEEP APNOEA SYNDROME
     Dosage: 400 MILLIGRAM;
     Route: 048
  5. COLESEVELAM HYDROCHLORIDE [Concomitant]
     Indication: BLOOD CHOLESTEROL
     Dosage: 1250 MILLIGRAM;
     Route: 048
     Dates: start: 20120301
  6. ERGOCALCIFEROL [Concomitant]
     Indication: SUPPLEMENTATION THERAPY
     Route: 048
  7. RAMIPRIL [Concomitant]
     Indication: HYPERTENSION
     Dosage: 10 MILLIGRAM;
     Route: 048
     Dates: start: 20110101
  8. AMLODIPINE [Concomitant]
     Indication: HYPERTENSION
     Dosage: 5 MILLIGRAM;
     Route: 048
     Dates: start: 20110101
  9. ACETYLSALICYLIC ACID SRT [Concomitant]
     Indication: ANTICOAGULANT THERAPY
     Route: 048
  10. ACETAMINOPHEN [Concomitant]
     Indication: PAIN
     Dosage: 500 MILLIGRAM;
     Route: 048
  11. ARIPIPRAZOLE [Concomitant]
     Indication: MENTAL IMPAIRMENT
     Route: 048
     Dates: start: 20120301
  12. PROVIGIL [Suspect]
     Indication: FIBROMYALGIA
  13. LORAZEPAM [Concomitant]
     Indication: HYPERTENSION
     Dosage: 2 MILLIGRAM;
     Route: 048
  14. FLUTICASONE PROPIONATE/SALMETEROL [Concomitant]
     Indication: ASTHMA

REACTIONS (4)
  - OFF LABEL USE [None]
  - INCORRECT DOSE ADMINISTERED [None]
  - KNEE ARTHROPLASTY [None]
  - FATIGUE [None]
